FAERS Safety Report 7870158-0 (Version None)
Quarter: 2011Q4

REPORT INFORMATION
  Report Type: 
  Country: None (occurrence: None)
  Receive Date: 20111028
  Receipt Date: 20111028
  Transmission Date: 20120403
  Serious: Yes (Hospitalization)
  Sender: FDA-Public Use
  Company Number: None

PATIENT
  Sex: Female
  Weight: 66.6 kg

DRUGS (4)
  1. FUROSEMIDE [Concomitant]
  2. METOLAZONE [Concomitant]
  3. MELPHALAN HYDROCHLORIDE [Suspect]
     Dosage: 64 MG
     Dates: end: 20110825
  4. DEXAMETHASONE [Suspect]
     Dosage: 160 MG
     Dates: end: 20110825

REACTIONS (7)
  - ASTHENIA [None]
  - DYSPNOEA [None]
  - DEHYDRATION [None]
  - NEUTROPENIC SEPSIS [None]
  - DIZZINESS [None]
  - HYPOKALAEMIA [None]
  - VENOUS THROMBOSIS LIMB [None]
